FAERS Safety Report 8376019-5 (Version None)
Quarter: 2012Q2

REPORT INFORMATION
  Report Type: 
  Country: None (occurrence: None)
  Receive Date: 20120522
  Receipt Date: 20120515
  Transmission Date: 20120825
  Serious: Yes (Hospitalization)
  Sender: FDA-Public Use
  Company Number: PHHY2012FR042193

PATIENT
  Sex: Female
  Weight: 65 kg

DRUGS (2)
  1. IMATINIB MESYLATE [Suspect]
     Indication: CHRONIC MYELOID LEUKAEMIA
     Dosage: UNK UKN, UNK
  2. SPRYCEL [Suspect]
     Dosage: 70 MG, DAILY
     Dates: start: 20080801

REACTIONS (3)
  - LUNG DISORDER [None]
  - ACUTE PULMONARY OEDEMA [None]
  - DYSPNOEA [None]
